FAERS Safety Report 4406870-5 (Version None)
Quarter: 2004Q3

REPORT INFORMATION
  Report Type: 
  Country: None (occurrence: None)
  Receive Date: 20040715
  Receipt Date: 20040326
  Transmission Date: 20050211
  Serious: Yes (Hospitalization)
  Sender: FDA-Public Use
  Company Number: 044-0981-M0000169

PATIENT
  Age: 71 Year
  Sex: Male
  Weight: 91 kg

DRUGS (4)
  1. ATORVASTATIN (ATORVASTATIN) [Suspect]
     Indication: CORONARY ARTERY DISEASE
     Dosage: 10 MG (DAILY), ORAL
     Route: 048
     Dates: start: 19990215, end: 20000420
  2. GLICLAZIDE (GLICLAZIDE) [Concomitant]
  3. NIFEDIPINE [Concomitant]
  4. LISINOPRIL [Concomitant]

REACTIONS (9)
  - BILE DUCT OBSTRUCTION [None]
  - BILIARY DILATATION [None]
  - BLOOD CALCIUM DECREASED [None]
  - CHILLS [None]
  - CHOLELITHIASIS [None]
  - HAEMOGLOBIN DECREASED [None]
  - JAUNDICE CHOLESTATIC [None]
  - MALAISE [None]
  - SINUS BRADYCARDIA [None]
